FAERS Safety Report 10562353 (Version 3)
Quarter: 2015Q4

REPORT INFORMATION
  Report Type: Report from Study
  Country: CA (occurrence: CA)
  Receive Date: 20141104
  Receipt Date: 20151028
  Transmission Date: 20160304
  Serious: Yes (Death, Hospitalization)
  Sender: FDA-Public Use
  Company Number: PHHY2014CA139475

PATIENT
  Age: 79 Year
  Sex: Male

DRUGS (2)
  1. SANDOSTATIN [Suspect]
     Active Substance: OCTREOTIDE ACETATE
     Indication: CARCINOID TUMOUR
     Dosage: 300 UG, TID
     Route: 058
  2. SANDOSTATIN LAR DEPOT [Suspect]
     Active Substance: OCTREOTIDE ACETATE
     Indication: CARCINOID TUMOUR
     Dosage: 20 MG, QMO EVERY 4 WEEKS
     Route: 030
     Dates: start: 20111108

REACTIONS (5)
  - Fall [Unknown]
  - Death [Fatal]
  - Skin exfoliation [Unknown]
  - Injury [Unknown]
  - Skin atrophy [Unknown]

NARRATIVE: CASE EVENT DATE: 20141017
